FAERS Safety Report 25313315 (Version 1)
Quarter: 2025Q2

REPORT INFORMATION
  Report Type: Spontaneous
  Country: RS (occurrence: RS)
  Receive Date: 20250514
  Receipt Date: 20250514
  Transmission Date: 20250717
  Serious: Yes (Death, Other)
  Sender: JOHNSON AND JOHNSON
  Company Number: RS-JNJFOC-20250514425

PATIENT

DRUGS (1)
  1. ERLEADA [Suspect]
     Active Substance: APALUTAMIDE
     Indication: Prostate cancer
     Route: 048

REACTIONS (9)
  - Death [Fatal]
  - Hypothyroidism [Unknown]
  - Haematotoxicity [Unknown]
  - Seizure [Unknown]
  - Hypertension [Unknown]
  - Cardiovascular disorder [Unknown]
  - Fatigue [Unknown]
  - Rash [Unknown]
  - Hypertransaminasaemia [Unknown]
